FAERS Safety Report 13501206 (Version 2)
Quarter: 2017Q4

REPORT INFORMATION
  Report Type: Spontaneous
  Country: US (occurrence: US)
  Receive Date: 20170501
  Receipt Date: 20171027
  Transmission Date: 20180320
  Serious: No
  Sender: FDA-Public Use
  Company Number: US-ROCHE-1890122

PATIENT
  Sex: Male

DRUGS (1)
  1. ESBRIET [Suspect]
     Active Substance: PIRFENIDONE
     Indication: ALVEOLAR LUNG DISEASE
     Dosage: 3X267 MG
     Route: 048
     Dates: start: 20170104

REACTIONS (1)
  - Nausea [Unknown]
